FAERS Safety Report 8184825-5 (Version None)
Quarter: 2012Q1

REPORT INFORMATION
  Report Type: 
  Country: None (occurrence: None)
  Receive Date: 20120305
  Receipt Date: 20120229
  Transmission Date: 20120608
  Serious: Yes (Other)
  Sender: FDA-Public Use
  Company Number: US-BAYER-2011-094851

PATIENT
  Age: 18 Year
  Sex: Female
  Weight: 61 kg

DRUGS (6)
  1. YAZ [Suspect]
     Indication: CONTRACEPTION
     Dosage: UNK
     Dates: start: 20081101, end: 20081201
  2. DARVOCET-N 50 [Concomitant]
     Dosage: UNK
     Dates: start: 20080902
  3. YAZ [Suspect]
     Indication: MENSTRUATION IRREGULAR
  4. MOTRIN [Concomitant]
     Dosage: UNK
     Dates: start: 20080902
  5. SENOKOT [SENNA ALEXANDRINA FRUIT] [Concomitant]
     Dosage: UNK
     Dates: start: 20080902
  6. ACETAMINOPHEN [Concomitant]
     Indication: PAIN
     Dosage: UNK
     Dates: start: 20080813

REACTIONS (8)
  - PAIN [None]
  - ABDOMINAL PAIN UPPER [None]
  - INJURY [None]
  - GALLBLADDER DISORDER [None]
  - ABDOMINAL PAIN [None]
  - DYSPNOEA [None]
  - CHEST DISCOMFORT [None]
  - CHOLECYSTITIS [None]
